FAERS Safety Report 9860713 (Version 1)
Quarter: 2014Q1

REPORT INFORMATION
  Report Type: Spontaneous
  Country: US (occurrence: US)
  Receive Date: 20140202
  Receipt Date: 20140202
  Transmission Date: 20141002
  Serious: No
  Sender: FDA-Public Use
  Company Number: US-ALLERGAN-1300656US

PATIENT
  Sex: Female

DRUGS (9)
  1. BOTOX [Suspect]
     Indication: MIGRAINE
     Dosage: UNK, SINGLE
     Route: 030
     Dates: start: 20130115, end: 20130115
  2. PERCOCET                           /00446701/ [Concomitant]
     Indication: ABDOMINAL PAIN
     Dosage: UNK UNK, PRN
     Route: 048
  3. PERCOCET                           /00446701/ [Concomitant]
     Indication: BACK PAIN
  4. KLONOPIN [Concomitant]
     Indication: ANXIETY
     Dosage: 2 MG, UNK
     Route: 048
  5. LEXAPRO [Concomitant]
     Indication: DEPRESSION
     Dosage: 30 MG, QD
     Route: 048
  6. LEXAPRO [Concomitant]
     Indication: ANXIETY
  7. OPIUM                              /00036301/ [Concomitant]
     Indication: DIARRHOEA
     Dosage: 0.6 ML, UNK
     Route: 048
  8. ZOFRAN                             /00955301/ [Concomitant]
     Indication: NAUSEA
     Dosage: 8 MG, PRN
     Route: 048
  9. CARAFATE [Concomitant]
     Indication: GASTRIC ULCER
     Dosage: UNK UNK, BID
     Route: 048

REACTIONS (6)
  - Sensory disturbance [Unknown]
  - Injection site pain [Recovered/Resolved]
  - Injection site urticaria [Unknown]
  - Pruritus [Unknown]
  - Nausea [Unknown]
  - Dizziness [Unknown]
